FAERS Safety Report 8835374 (Version 2)
Quarter: 2012Q4

REPORT INFORMATION
  Report Type: Report from Study
  Country: GR (occurrence: GR)
  Receive Date: 20121011
  Receipt Date: 20121231
  Transmission Date: 20130627
  Serious: Yes (Death)
  Sender: FDA-Public Use
  Company Number: GR-CELGENEUS-066-21880-12091888

PATIENT
  Age: 78 Year
  Sex: Female

DRUGS (11)
  1. REVLIMID [Suspect]
     Indication: MULTIPLE MYELOMA
     Route: 048
     Dates: start: 20120726, end: 20120807
  2. ELOTUZUMAB [Suspect]
     Indication: MULTIPLE MYELOMA
     Route: 041
     Dates: start: 20120726, end: 20120802
  3. DEXAMETHASONE [Suspect]
     Indication: MULTIPLE MYELOMA
     Route: 041
     Dates: start: 20120726, end: 20120802
  4. DEXAMETHASONE [Suspect]
     Route: 048
     Dates: start: 20120726, end: 20120802
  5. HYOSCINE [Concomitant]
     Indication: DRUG USE FOR UNKNOWN INDICATION
     Route: 065
     Dates: start: 20120701, end: 20120807
  6. NORGESIC [Concomitant]
     Indication: DRUG USE FOR UNKNOWN INDICATION
     Route: 065
     Dates: start: 20120701, end: 20120807
  7. DICLOFENAC [Concomitant]
     Indication: DRUG USE FOR UNKNOWN INDICATION
     Route: 065
     Dates: start: 20120701, end: 20120807
  8. RED BLOOD CELL TRANSFUSION [Concomitant]
     Indication: DRUG USE FOR UNKNOWN INDICATION
     Route: 041
     Dates: start: 20120710, end: 20120710
  9. ACETYLSALICYLIC ACID [Concomitant]
     Indication: THROMBOSIS PROPHYLAXIS
     Route: 065
     Dates: start: 20120726, end: 20120807
  10. VALACICLOVIR [Concomitant]
     Indication: DRUG USE FOR UNKNOWN INDICATION
     Route: 065
     Dates: start: 20120727, end: 20120807
  11. OMEPRAZOLE [Concomitant]
     Indication: DRUG USE FOR UNKNOWN INDICATION
     Route: 065
     Dates: start: 20120726, end: 20120807

REACTIONS (1)
  - Arrhythmia [Fatal]
